FAERS Safety Report 16950166 (Version 2)
Quarter: 2019Q4

REPORT INFORMATION
  Report Type: Spontaneous
  Country: DE (occurrence: DE)
  Receive Date: 20191023
  Receipt Date: 20191216
  Transmission Date: 20200122
  Serious: Yes (Hospitalization, Other)
  Sender: FDA-Public Use
  Company Number: DE-009507513-1910DEU010625

PATIENT
  Age: 80 Year
  Sex: Male

DRUGS (10)
  1. TROMCARDIN COMPLEX [DIETARY SUPPLEMENT] [Suspect]
     Active Substance: DIETARY SUPPLEMENT
     Dosage: 2X1
  2. ATORVASTATIN [Suspect]
     Active Substance: ATORVASTATIN
     Indication: DYSLIPIDAEMIA
     Dosage: 40 MG, QD (1X1)
  3. TAMSULOSIN HYDROCHLORIDE. [Suspect]
     Active Substance: TAMSULOSIN HYDROCHLORIDE
     Indication: PROSTATIC DISORDER
     Dosage: 0.4 MG, QD (1X1)
  4. VIGANTOLETTEN [Concomitant]
     Active Substance: CHOLECALCIFEROL
     Dosage: STRENGTH: 1000 IE; DOSE: 3000 IE, QD (1X3
  5. GLUCOBAY [Suspect]
     Active Substance: ACARBOSE
     Dosage: 50 MG, TID (3X1)
  6. RAMIPRIL. [Concomitant]
     Active Substance: RAMIPRIL
     Dosage: 5 MG, QD (1X1
  7. JANUMET [Suspect]
     Active Substance: METFORMIN HYDROCHLORIDE\SITAGLIPTIN PHOSPHATE
     Indication: TYPE 2 DIABETES MELLITUS
     Dosage: 1 TABLET (50 MILLIGRAM/1000 MILLIGRAM), TWICE DAILY
     Route: 048
     Dates: end: 20190812
  8. ASPIRIN. [Concomitant]
     Active Substance: ASPIRIN
     Dosage: 100 MG, QD (1X1)
  9. MAGNETRANS FORTE [Suspect]
     Active Substance: MAGNESIUM OXIDE
     Dosage: 150 MG, BID (2X1)
  10. DEXAMETHASONE (+) NEOMYCIN SULFATE [Concomitant]
     Dosage: STRENGTH: 2.45 MG/1 MG/ 1 ML; DOSE: 4X1

REACTIONS (5)
  - Hepatitis cholestatic [Recovered/Resolved]
  - Weight decreased [Unknown]
  - Laboratory test abnormal [Recovered/Resolved]
  - Cerebrovascular accident [Unknown]
  - Drug-induced liver injury [Recovered/Resolved]

NARRATIVE: CASE EVENT DATE: 201812
